FAERS Safety Report 5184195-0 (Version None)
Quarter: 2006Q4

REPORT INFORMATION
  Report Type: 
  Country: None (occurrence: None)
  Receive Date: 20061220
  Receipt Date: 20060216
  Transmission Date: 20070319
  Serious: No
  Sender: FDA-Public Use
  Company Number: US-GLAXOSMITHKLINE-A0593943A

PATIENT
  Age: 53 Year
  Sex: Female

DRUGS (4)
  1. NICODERM CQ [Suspect]
     Dates: end: 20060213
  2. NICODERM CQ [Suspect]
     Dates: start: 20060103
  3. PAXIL [Concomitant]
  4. XANAX [Concomitant]

REACTIONS (3)
  - ABNORMAL DREAMS [None]
  - APPLICATION SITE PRURITUS [None]
  - APPLICATION SITE RASH [None]
